FAERS Safety Report 19526522 (Version 2)
Quarter: 2024Q3

REPORT INFORMATION
  Report Type: Spontaneous
  Country: FR (occurrence: FR)
  Receive Date: 20210713
  Receipt Date: 20240720
  Transmission Date: 20241016
  Serious: Yes (Other)
  Sender: AUROBINDO
  Company Number: FR-SEATTLE GENETICS-2021SGN02569

PATIENT
  Age: 58 Year
  Sex: Female

DRUGS (5)
  1. CAPECITABINE [Suspect]
     Active Substance: CAPECITABINE
     Indication: Renal cancer
     Dosage: 2000 MILLIGRAM/SQ. METER, ONCE A DAY (1000 MG/M2, BID)
     Route: 065
  2. TRASTUZUMAB [Suspect]
     Active Substance: TRASTUZUMAB
     Indication: Renal cancer
     Dosage: 600 MILLIGRAM (3 WEEK)
     Route: 058
  3. TUCATINIB [Suspect]
     Active Substance: TUCATINIB
     Indication: Renal cancer
     Dosage: 600 MILLIGRAM, ONCE A DAY
     Route: 065
     Dates: start: 20210126, end: 20210203
  4. TUCATINIB [Suspect]
     Active Substance: TUCATINIB
     Dosage: 300 MILLIGRAM, CYCLICAL (300 MG, TWICE DAILY WITH A 21-DAY TREATMENT CYCLE)
     Route: 065
     Dates: start: 20210126, end: 20210203
  5. TUCATINIB [Suspect]
     Active Substance: TUCATINIB
     Dosage: 400 MILLIGRAM, ONCE A DAY
     Route: 065
     Dates: start: 20210203

REACTIONS (2)
  - Diarrhoea [Unknown]
  - Mucosal inflammation [Unknown]

NARRATIVE: CASE EVENT DATE: 20210203
